FAERS Safety Report 7645475-X (Version None)
Quarter: 2011Q3

REPORT INFORMATION
  Report Type: 
  Country: None (occurrence: None)
  Receive Date: 20110729
  Receipt Date: 20110718
  Transmission Date: 20111222
  Serious: Yes (Other)
  Sender: FDA-Public Use
  Company Number: US-ELI_LILLY_AND_COMPANY-US201103006760

PATIENT
  Sex: Female

DRUGS (4)
  1. LEVOTHYROXINE SODIUM [Concomitant]
  2. ZYPREXA [Suspect]
     Dosage: 15 MG, QD
  3. CLONAZEPAM [Concomitant]
     Dosage: 3 MG, QD
  4. ZYPREXA [Suspect]
     Indication: DEPRESSION
     Dosage: 15 MG, QD
     Route: 048
     Dates: end: 20090101

REACTIONS (9)
  - ARRHYTHMIA [None]
  - TACHYCARDIA [None]
  - OFF LABEL USE [None]
  - VISUAL IMPAIRMENT [None]
  - WRONG TECHNIQUE IN DRUG USAGE PROCESS [None]
  - CARDIOMEGALY [None]
  - HYPOTHYROIDISM [None]
  - EATING DISORDER [None]
  - WEIGHT INCREASED [None]
